FAERS Safety Report 6900789-3 (Version None)
Quarter: 2010Q3

REPORT INFORMATION
  Report Type: 
  Country: None (occurrence: None)
  Receive Date: 20100730
  Receipt Date: 20100720
  Transmission Date: 20110219
  Serious: Yes (Life-Threatening)
  Sender: FDA-Public Use
  Company Number: 2010MA001010

PATIENT
  Age: 61 Year
  Sex: Female

DRUGS (4)
  1. FLUOXETINE [Suspect]
  2. CHAMPIX (NO PREF. NAME) [Suspect]
     Dosage: 1 MG;BID;PO
     Route: 048
     Dates: start: 20090415, end: 20090710
  3. CON MEDS [Concomitant]
  4. PREV MEDS [Concomitant]

REACTIONS (3)
  - DEPRESSION SUICIDAL [None]
  - DRUG INTERACTION [None]
  - DYSPEPSIA [None]
